FAERS Safety Report 18132208 (Version 1)
Quarter: 2020Q3

REPORT INFORMATION
  Report Type: Report from Study
  Country: JP (occurrence: JP)
  Receive Date: 20200811
  Receipt Date: 20200811
  Transmission Date: 20201103
  Serious: Yes (Other)
  Sender: FDA-Public Use
  Company Number: JP-CELLTRION INC.-2020JP024969

PATIENT

DRUGS (3)
  1. CT?P13 [Suspect]
     Active Substance: INFLIXIMAB-DYYB
     Indication: COLITIS ULCERATIVE
     Dosage: 335 MG, WEIGHT: 67.KG (FIRST ADMINISTRATION)
     Route: 041
     Dates: start: 20181202, end: 20181202
  2. CT?P13 [Suspect]
     Active Substance: INFLIXIMAB-DYYB
     Dosage: 335 MG, WEIGHT: 67.KG (SECOND ADMINISTRATION)
     Route: 041
     Dates: start: 20191116, end: 20191116
  3. MESALAZINE [Concomitant]
     Active Substance: MESALAMINE
     Dosage: 1600 MG, QD
     Route: 048
     Dates: start: 20180210

REACTIONS (5)
  - Solar dermatitis [Unknown]
  - Influenza [Recovered/Resolved]
  - Rectal polyp [Recovered/Resolved]
  - Product use issue [Unknown]
  - Sinusitis [Recovered/Resolved]

NARRATIVE: CASE EVENT DATE: 20190601
